FAERS Safety Report 9950133 (Version 1)
Quarter: 2014Q1

REPORT INFORMATION
  Report Type: Report from Study
  Country: US (occurrence: US)
  Receive Date: 20140304
  Receipt Date: 20140304
  Transmission Date: 20141002
  Serious: No
  Sender: FDA-Public Use
  Company Number: US-ABBVIE-13P-163-1066401-00

PATIENT
  Age: 38 Year
  Sex: Female

DRUGS (8)
  1. HUMIRA [Suspect]
     Indication: PSORIASIS
     Dates: start: 201208
  2. RISPERIDONE [Concomitant]
     Indication: ANXIETY
     Dosage: 1 MG DAILY
  3. CITALOPRAM [Concomitant]
     Indication: SLEEP DISORDER
     Dosage: AT BEDTIME
  4. METHOTREXATE [Concomitant]
     Indication: PSORIASIS
     Dosage: 2.5 MG 5 EVERY SATURDAY
  5. FOLIC ACID [Concomitant]
     Indication: PRODUCT USED FOR UNKNOWN INDICATION
     Dosage: 1 MG DAILY
  6. FISH OIL [Concomitant]
     Indication: PRODUCT USED FOR UNKNOWN INDICATION
     Dosage: DAILY
  7. MVI [Concomitant]
     Indication: PRODUCT USED FOR UNKNOWN INDICATION
     Dosage: DAILY
  8. MEGESTROLAC [Concomitant]
     Indication: VAGINAL HAEMORRHAGE

REACTIONS (2)
  - Influenza [Recovered/Resolved]
  - Sinusitis [Unknown]
